FAERS Safety Report 19973907 (Version 3)
Quarter: 2023Q4

REPORT INFORMATION
  Report Type: Report from Study
  Country: US (occurrence: US)
  Receive Date: 20211020
  Receipt Date: 20231122
  Transmission Date: 20240109
  Serious: Yes (Disabling)
  Sender: FDA-Public Use
  Company Number: US-GW PHARMA-202110USGW05022

PATIENT
  Sex: Male

DRUGS (4)
  1. EPIDIOLEX [Suspect]
     Active Substance: CANNABIDIOL
     Indication: Lennox-Gastaut syndrome
     Dosage: 130 MILLIGRAM, BID
     Route: 048
     Dates: start: 20210720, end: 2021
  2. EPIDIOLEX [Suspect]
     Active Substance: CANNABIDIOL
     Dosage: 150 MG, FREQUENCY NOT REPORTED
     Route: 048
     Dates: start: 2021, end: 2021
  3. EPIDIOLEX [Suspect]
     Active Substance: CANNABIDIOL
     Dosage: 270 MILLIGRAM, BID,  (DOSE INCREASED)
     Route: 048
     Dates: start: 2021
  4. EPIDIOLEX [Suspect]
     Active Substance: CANNABIDIOL
     Dosage: 1.5 MILLILITER, BID
     Route: 048
     Dates: start: 202107

REACTIONS (7)
  - Gait inability [Not Recovered/Not Resolved]
  - Asthenia [Not Recovered/Not Resolved]
  - Hypersomnia [Unknown]
  - Agitation [Unknown]
  - Somnolence [Unknown]
  - Decreased appetite [Unknown]
  - Fatigue [Unknown]

NARRATIVE: CASE EVENT DATE: 20210101
